FAERS Safety Report 9317372 (Version 1)
Quarter: 2013Q2

REPORT INFORMATION
  Report Type: Spontaneous
  Country: US (occurrence: US)
  Receive Date: 20130530
  Receipt Date: 20130530
  Transmission Date: 20140414
  Serious: No
  Sender: FDA-Public Use
  Company Number: US-NOVEN-12US004843

PATIENT
  Age: 4 Year
  Sex: Male
  Weight: 16.78 kg

DRUGS (4)
  1. DAYTRANA [Suspect]
     Indication: ATTENTION DEFICIT/HYPERACTIVITY DISORDER
     Dosage: 10 MG, QD
     Route: 062
     Dates: start: 20120623, end: 20120623
  2. RISPERIDONE [Concomitant]
     Indication: ABNORMAL BEHAVIOUR
     Dosage: 1 MG, UNK
     Route: 048
  3. BENTYL [Concomitant]
     Indication: ABDOMINAL PAIN UPPER
     Dosage: 0.5 MG, UNK
     Route: 048
  4. CLONIDINE [Concomitant]
     Indication: ATTENTION DEFICIT/HYPERACTIVITY DISORDER
     Dosage: 0.3 MG, UNK
     Route: 048

REACTIONS (4)
  - Psychomotor hyperactivity [Not Recovered/Not Resolved]
  - Impulsive behaviour [Not Recovered/Not Resolved]
  - Self-injurious ideation [Not Recovered/Not Resolved]
  - Off label use [Not Recovered/Not Resolved]
